FAERS Safety Report 21669355 (Version 1)
Quarter: 2022Q4

REPORT INFORMATION
  Report Type: Report from Study
  Country: None (occurrence: US)
  Receive Date: 20221201
  Receipt Date: 20221201
  Transmission Date: 20230113
  Serious: Yes (Death, Hospitalization, Other)
  Sender: FDA-Public Use
  Company Number: US-Pharmascience Inc.-2135437

PATIENT

DRUGS (3)
  1. BUSULFAN [Suspect]
     Active Substance: BUSULFAN
  2. GEMCITABINE [Suspect]
     Active Substance: GEMCITABINE
  3. MELPHALAN [Suspect]
     Active Substance: MELPHALAN

REACTIONS (4)
  - Disease progression [Fatal]
  - Appendicitis [Unknown]
  - Colitis [Unknown]
  - Drug ineffective [Unknown]
